FAERS Safety Report 19159683 (Version 4)
Quarter: 2021Q3

REPORT INFORMATION
  Report Type: Report from Study
  Country: US (occurrence: US)
  Receive Date: 20210420
  Receipt Date: 20210910
  Transmission Date: 20211014
  Serious: Yes (Hospitalization)
  Sender: FDA-Public Use
  Company Number: NVSC2021US086027

PATIENT
  Age: 64 Year
  Sex: Female

DRUGS (2)
  1. ENTRESTO [Suspect]
     Active Substance: SACUBITRIL\VALSARTAN
     Indication: CARDIAC FAILURE
     Dosage: 100 MG (49/51 MG), BID
     Route: 048
     Dates: start: 202006
  2. ENTRESTO [Suspect]
     Active Substance: SACUBITRIL\VALSARTAN
     Dosage: 200 MG (97.103 MG), BID
     Route: 048

REACTIONS (13)
  - Cardiac failure chronic [Unknown]
  - Arthritis [Unknown]
  - Back pain [Unknown]
  - Gait disturbance [Unknown]
  - Lung disorder [Unknown]
  - Blood pressure increased [Recovering/Resolving]
  - COVID-19 [Unknown]
  - Muscle atrophy [Unknown]
  - Muscular weakness [Unknown]
  - Therapeutic response unexpected [Recovering/Resolving]
  - Limb discomfort [Recovering/Resolving]
  - Arthralgia [Unknown]
  - Pain in extremity [Unknown]

NARRATIVE: CASE EVENT DATE: 2020
